FAERS Safety Report 19680760 (Version 4)
Quarter: 2023Q1

REPORT INFORMATION
  Report Type: Report from Study
  Country: CA (occurrence: CA)
  Receive Date: 20210810
  Receipt Date: 20230327
  Transmission Date: 20230418
  Serious: Yes (Other)
  Sender: FDA-Public Use
  Company Number: CA-NOVARTISPH-PHHY2014CA045276

PATIENT
  Sex: Male

DRUGS (6)
  1. SANDOSTATIN LAR DEPOT [Suspect]
     Active Substance: OCTREOTIDE ACETATE
     Indication: Carcinoid tumour
     Dosage: 60 MG, Q4W
     Route: 030
     Dates: start: 20070806
  2. SANDOSTATIN LAR DEPOT [Suspect]
     Active Substance: OCTREOTIDE ACETATE
     Indication: Metastases to liver
     Dosage: 20 MG, QMO (EVERY 4 WEEKS)
     Route: 030
     Dates: start: 20070806, end: 2009
  3. SANDOSTATIN LAR DEPOT [Suspect]
     Active Substance: OCTREOTIDE ACETATE
     Dosage: 30 MG, QMO (EVERY 4 WEEKS)
     Route: 030
     Dates: start: 2009
  4. SANDOSTATIN LAR DEPOT [Suspect]
     Active Substance: OCTREOTIDE ACETATE
     Dosage: 40 MG, QMO (EVERY 4 WEEKS)
     Route: 030
     Dates: start: 2009
  5. SANDOSTATIN LAR DEPOT [Suspect]
     Active Substance: OCTREOTIDE ACETATE
     Dosage: 60 MG, QMO (EVERY 4 WEEKS)
     Route: 030
     Dates: start: 2009
  6. ZANTAC [Concomitant]
     Active Substance: RANITIDINE HYDROCHLORIDE
     Indication: Product used for unknown indication
     Dosage: 1 DF, QD
     Route: 065

REACTIONS (18)
  - Deafness [Not Recovered/Not Resolved]
  - Hypoacusis [Unknown]
  - Second primary malignancy [Unknown]
  - Lung disorder [Unknown]
  - Prostate cancer [Unknown]
  - Pneumonia [Unknown]
  - Memory impairment [Unknown]
  - Chronic obstructive pulmonary disease [Unknown]
  - Dyspnoea [Unknown]
  - Fatigue [Unknown]
  - Flushing [Unknown]
  - Heart valve incompetence [Unknown]
  - Cardiac disorder [Unknown]
  - General physical health deterioration [Unknown]
  - Diarrhoea [Unknown]
  - Incorrect dose administered by device [Unknown]
  - Device occlusion [Unknown]
  - Therapeutic product effect incomplete [Unknown]

NARRATIVE: CASE EVENT DATE: 20130101
